FAERS Safety Report 11693853 (Version 2)
Quarter: 2017Q4

REPORT INFORMATION
  Report Type: Other
  Country: JP (occurrence: JP)
  Receive Date: 20151103
  Receipt Date: 20171109
  Transmission Date: 20180320
  Serious: Yes (Life-Threatening, Hospitalization, Other)
  Sender: FDA-Public Use
  Company Number: JP-EMD SERONO-8051200

PATIENT
  Age: 35 Year
  Sex: Female
  Weight: 65 kg

DRUGS (3)
  1. HMG                                /06269501/ [Concomitant]
     Active Substance: GONADOTROPHIN, CHORIONIC
     Indication: IN VITRO FERTILISATION
     Route: 065
  2. GONAL-F [Suspect]
     Active Substance: FOLLITROPIN
     Indication: IN VITRO FERTILISATION
     Dosage: FOURTH IVF-ET
     Route: 058
  3. BUSERELIN ACETATE [Concomitant]
     Active Substance: BUSERELIN ACETATE
     Indication: IN VITRO FERTILISATION
     Route: 065

REACTIONS (3)
  - Ovarian hyperstimulation syndrome [Unknown]
  - Deep vein thrombosis [Unknown]
  - Embolic stroke [Recovering/Resolving]
